FAERS Safety Report 5990258-X (Version None)
Quarter: 2008Q4

REPORT INFORMATION
  Report Type: 
  Country: None (occurrence: None)
  Receive Date: 20081211
  Receipt Date: 20081201
  Transmission Date: 20090506
  Serious: Yes (Other)
  Sender: FDA-Public Use
  Company Number: US-CELGENEUS-163-20785-08011646

PATIENT
  Sex: Female

DRUGS (4)
  1. THALOMID [Suspect]
     Indication: MULTIPLE MYELOMA
     Route: 048
     Dates: start: 20071205, end: 20080101
  2. THALOMID [Suspect]
     Route: 048
     Dates: start: 20080301, end: 20080401
  3. THALOMID [Suspect]
     Route: 048
     Dates: start: 20080401, end: 20080701
  4. THALOMID [Suspect]
     Route: 048
     Dates: start: 20080901

REACTIONS (1)
  - BLOOD HUMAN CHORIONIC GONADOTROPIN INCREASED [None]
